FAERS Safety Report 8339486 (Version 9)
Quarter: 2016Q4

REPORT INFORMATION
  Report Type: Spontaneous
  Country: JP (occurrence: JP)
  Receive Date: 20120117
  Receipt Date: 20161007
  Transmission Date: 20170207
  Serious: Yes (Death, Hospitalization, Other)
  Sender: FDA-Public Use
  Company Number: JP-GLAXOSMITHKLINE-B0771988A

PATIENT
  Age: 64 Year
  Sex: Female

DRUGS (17)
  1. LAMOTRIGINE. [Suspect]
     Active Substance: LAMOTRIGINE
     Dosage: 50 MG, BID
     Route: 048
     Dates: start: 20111027, end: 20111216
  2. LIMAS [Concomitant]
     Active Substance: LITHIUM CARBONATE
     Indication: BIPOLAR I DISORDER
     Dosage: 200 MG, QD
  3. DOGMATYL [Concomitant]
     Active Substance: SULPIRIDE
     Indication: BIPOLAR I DISORDER
     Dosage: 50 MG, QD
  4. AMLODIN OD [Concomitant]
     Active Substance: AMLODIPINE BESYLATE
     Dosage: 5 MG, QD
  5. SILECE [Concomitant]
     Active Substance: FLUNITRAZEPAM
     Indication: BIPOLAR I DISORDER
     Dosage: 1 MG, BID
     Dates: start: 2008
  6. TRYPTANOL [Concomitant]
     Active Substance: AMITRIPTYLINE
     Indication: BIPOLAR I DISORDER
     Dosage: 25 MG, BID
     Dates: start: 2008
  7. DEPAS [Concomitant]
     Active Substance: ETIZOLAM
     Indication: BIPOLAR I DISORDER
     Dosage: 0.5 MG, QD
  8. HALCION [Concomitant]
     Active Substance: TRIAZOLAM
     Indication: BIPOLAR I DISORDER
     Dosage: 0.25 MG, BID
     Dates: start: 2008
  9. TAKEPRON [Concomitant]
     Active Substance: LANSOPRAZOLE
     Dosage: 15 MG, QD
     Dates: start: 2008
  10. RIVOTRIL [Concomitant]
     Active Substance: CLONAZEPAM
     Dosage: UNK
  11. LEVOTOMIN [Concomitant]
     Active Substance: LEVOMEPROMAZINE
     Indication: BIPOLAR I DISORDER
     Dosage: 5 MG, BID
     Dates: start: 2008
  12. LAMOTRIGINE. [Suspect]
     Active Substance: LAMOTRIGINE
     Indication: BIPOLAR I DISORDER
     Dosage: 25 MG, BID
     Route: 048
     Dates: start: 20111006, end: 20111026
  13. NORVASC [Concomitant]
     Active Substance: AMLODIPINE BESYLATE
     Indication: HYPERTENSION
     Dosage: 5 MG, QD
     Dates: start: 2008
  14. AKINETON [Concomitant]
     Active Substance: BIPERIDEN HYDROCHLORIDE
     Indication: BIPOLAR I DISORDER
     Dosage: 1 MG, QD
  15. ZYPREXA [Concomitant]
     Active Substance: OLANZAPINE
     Indication: BIPOLAR I DISORDER
     Dosage: 5 MG, QD
     Dates: start: 2008
  16. MICARDIS [Concomitant]
     Active Substance: TELMISARTAN
     Indication: HYPERTENSION
     Dosage: 40 MG, QD
     Dates: start: 2008
  17. SEROQUEL [Concomitant]
     Active Substance: QUETIAPINE FUMARATE
     Indication: BIPOLAR I DISORDER
     Dosage: 15 MG, QD

REACTIONS (50)
  - Device related infection [Unknown]
  - Aortic dissection [Unknown]
  - Human herpes virus 6 serology positive [Unknown]
  - Blood albumin decreased [Unknown]
  - Obstructive airways disorder [Unknown]
  - Lung abscess [Unknown]
  - Cardiac arrest [Unknown]
  - Red blood cell count decreased [Unknown]
  - Protein total decreased [Unknown]
  - Generalised erythema [Unknown]
  - Drug reaction with eosinophilia and systemic symptoms [Fatal]
  - Haematemesis [Unknown]
  - Death [Fatal]
  - Aspartate aminotransferase increased [Unknown]
  - Lymphocyte count decreased [Unknown]
  - Dermatitis exfoliative [Unknown]
  - Toxic skin eruption [Unknown]
  - Asphyxia [Unknown]
  - Eyelid oedema [Unknown]
  - Eosinophil count increased [Unknown]
  - Haemoptysis [Unknown]
  - Device related infection [Unknown]
  - Depressed level of consciousness [Unknown]
  - Gamma-glutamyltransferase increased [Unknown]
  - Neutrophil percentage increased [Unknown]
  - Pyrexia [Unknown]
  - Cytomegalovirus test positive [Unknown]
  - Shock haemorrhagic [Fatal]
  - Alanine aminotransferase increased [Unknown]
  - Brain natriuretic peptide decreased [Unknown]
  - Drug eruption [Recovering/Resolving]
  - White blood cell count increased [Unknown]
  - Aortic injury [Unknown]
  - Aortic aneurysm rupture [Unknown]
  - C-reactive protein increased [Unknown]
  - Rash [Unknown]
  - Hepatic function abnormal [Unknown]
  - Face oedema [Unknown]
  - Laryngeal oedema [Unknown]
  - Pulmonary cavitation [Unknown]
  - Aneurysm [Unknown]
  - Dyspnoea [Unknown]
  - Visual field defect [Unknown]
  - Infective aneurysm [Fatal]
  - Arteriovenous graft site haematoma [Unknown]
  - Platelet count increased [Unknown]
  - Fibrin D dimer increased [Unknown]
  - Blood immunoglobulin G increased [Unknown]
  - Blood cholinesterase decreased [Unknown]
  - Lymphadenopathy [Unknown]

NARRATIVE: CASE EVENT DATE: 20111130
